FAERS Safety Report 4734090-3 (Version None)
Quarter: 2005Q3

REPORT INFORMATION
  Report Type: 
  Country: None (occurrence: None)
  Receive Date: 20050803
  Receipt Date: 20050803
  Transmission Date: 20060218
  Serious: Yes (Other)
  Sender: FDA-Public Use
  Company Number: None

PATIENT
  Age: 71 Year
  Sex: Male
  Weight: 64.4108 kg

DRUGS (1)
  1. DOCETAXEL 35MG SANOFI-AVENTIS [Suspect]
     Indication: PROSTATE CANCER
     Dosage: 35MG/M2 WEEKLY X3 QMON INTRAVENOUS
     Route: 042
     Dates: start: 20050124, end: 20050707

REACTIONS (4)
  - BLOOD PRESSURE INCREASED [None]
  - DIFFICULTY IN WALKING [None]
  - FEMUR FRACTURE [None]
  - NUCLEAR MAGNETIC RESONANCE IMAGING BRAIN ABNORMAL [None]
